FAERS Safety Report 15746900 (Version 1)
Quarter: 2018Q4

REPORT INFORMATION
  Report Type: Spontaneous
  Country: FR (occurrence: FR)
  Receive Date: 20181220
  Receipt Date: 20181220
  Transmission Date: 20190205
  Serious: Yes (Hospitalization)
  Sender: FDA-Public Use
  Company Number: FR-TEVA-2018-FR-988941

PATIENT
  Age: 33 Year
  Sex: Male
  Weight: 90 kg

DRUGS (11)
  1. OXYBUTININE BMS [Concomitant]
     Active Substance: OXYBUTYNIN
  2. METHOTREXATE. [Suspect]
     Active Substance: METHOTREXATE
     Indication: ACUTE MYELOID LEUKAEMIA
     Route: 037
     Dates: start: 20180927, end: 20180927
  3. GRANOCYTE [Suspect]
     Active Substance: LENOGRASTIM
     Indication: ACUTE MYELOID LEUKAEMIA
     Route: 041
     Dates: start: 20180929, end: 20181008
  4. NEFOPAM (CHLORHYDRATE DE) [Concomitant]
     Active Substance: NEFOPAM HYDROCHLORIDE
  5. IMIPENEM CILASTATINE MYLAN [Suspect]
     Active Substance: IMIPENEM
     Indication: FEBRILE BONE MARROW APLASIA
     Dosage: 4 GRAM DAILY;
     Route: 041
     Dates: start: 20180928, end: 20181004
  6. TRAMADOL (CHLORHYDRATE DE) [Concomitant]
     Active Substance: TRAMADOL HYDROCHLORIDE
  7. VANCOMYCINE SANDOZ 250 MG, POUDRE POUR SOLUTION POUR PERFUSION [Suspect]
     Active Substance: VANCOMYCIN HYDROCHLORIDE
     Indication: FEBRILE BONE MARROW APLASIA
     Route: 041
     Dates: start: 20180928, end: 20181008
  8. PARACETAMOL [Concomitant]
     Active Substance: ACETAMINOPHEN
  9. POSACONAZOLE [Concomitant]
     Active Substance: POSACONAZOLE
  10. ALFUZOSINE (CHLORHYDRATE D^) [Concomitant]
     Active Substance: ALFUZOSIN HYDROCHLORIDE
  11. RACECADOTRIL [Concomitant]
     Active Substance: RACECADOTRIL

REACTIONS (3)
  - Confusional state [Recovered/Resolved]
  - Aphasia [Recovered/Resolved]
  - Loss of consciousness [Recovered/Resolved]

NARRATIVE: CASE EVENT DATE: 20181004
